FAERS Safety Report 17860009 (Version 1)
Quarter: 2020Q2

REPORT INFORMATION
  Report Type: Spontaneous
  Country: US (occurrence: US)
  Receive Date: 20200604
  Receipt Date: 20200604
  Transmission Date: 20200714
  Serious: No
  Sender: FDA-Public Use
  Company Number: None

PATIENT
  Age: 68 Year
  Sex: Female
  Weight: 96.8 kg

DRUGS (1)
  1. HEPARIN SODIUM INJECTION: 10,000 UNITS/10ML VIAL [Suspect]
     Active Substance: HEPARIN SODIUM
     Route: 040

REACTIONS (2)
  - Therapeutic response decreased [None]
  - Drug ineffective [None]
